FAERS Safety Report 9361360 (Version 2)
Quarter: 2013Q3

REPORT INFORMATION
  Report Type: Spontaneous
  Country: JP (occurrence: JP)
  Receive Date: 20130621
  Receipt Date: 20130704
  Transmission Date: 20140515
  Serious: Yes (Other)
  Sender: FDA-Public Use
  Company Number: JP-ASTRAZENECA-2013SE42859

PATIENT
  Age: 5 Year
  Sex: Male

DRUGS (3)
  1. XYLOCAINE [Suspect]
     Indication: NERVE BLOCK
     Route: 053
  2. ANAPEINE [Suspect]
     Indication: NERVE BLOCK
     Route: 053
  3. KETALAR [Concomitant]
     Indication: ANAESTHESIA
     Dosage: 1-2 ML
     Route: 042

REACTIONS (1)
  - Grand mal convulsion [Recovered/Resolved]
